FAERS Safety Report 16821088 (Version 2)
Quarter: 2019Q3

REPORT INFORMATION
  Report Type: Spontaneous
  Country: SE (occurrence: SE)
  Receive Date: 20190918
  Receipt Date: 20190924
  Transmission Date: 20191005
  Serious: Yes (Hospitalization, Other)
  Sender: FDA-Public Use
  Company Number: SE-AUROBINDO-AUR-APL-2019-060427

PATIENT
  Age: 28 Year
  Sex: Female

DRUGS (6)
  1. JARDIANCE [Suspect]
     Active Substance: EMPAGLIFLOZIN
     Indication: PRODUCT USED FOR UNKNOWN INDICATION
     Dosage: 30 MILLIGRAM (3)
     Route: 065
     Dates: start: 20190524, end: 20190524
  2. ANAFRANIL [Suspect]
     Active Substance: CLOMIPRAMINE HYDROCHLORIDE
     Indication: PRODUCT USED FOR UNKNOWN INDICATION
     Dosage: 225 MILLIGRAM, (3)
     Route: 065
     Dates: start: 20190524, end: 20190524
  3. OLANZAPINE. [Suspect]
     Active Substance: OLANZAPINE
     Indication: PRODUCT USED FOR UNKNOWN INDICATION
     Dosage: UNK, 10 OLANZAPINE VISSA 10 OCH VISSA 5, H?LFTEN (75 MG)
     Route: 065
     Dates: start: 20190524, end: 20190524
  4. ZOPICLONE [Suspect]
     Active Substance: ZOPICLONE
     Indication: PRODUCT USED FOR UNKNOWN INDICATION
     Dosage: UNK(2)
     Route: 065
     Dates: start: 20190524, end: 20190524
  5. ESOMEPRAZOLE. [Suspect]
     Active Substance: ESOMEPRAZOLE MAGNESIUM
     Indication: PRODUCT USED FOR UNKNOWN INDICATION
     Dosage: UNK, (3)
     Route: 065
     Dates: start: 20190524, end: 20190524
  6. LERGIGAN [PROMETHAZINE HYDROCHLORIDE] [Suspect]
     Active Substance: PROMETHAZINE HYDROCHLORIDE
     Indication: PRODUCT USED FOR UNKNOWN INDICATION
     Dosage: 550 MILLIGRAM, (22)
     Route: 048
     Dates: start: 20190524

REACTIONS (6)
  - Depressed level of consciousness [Unknown]
  - Hallucination [Unknown]
  - Intentional overdose [Unknown]
  - Restless legs syndrome [Unknown]
  - Akathisia [Unknown]
  - Intentional self-injury [Unknown]

NARRATIVE: CASE EVENT DATE: 20190524
